FAERS Safety Report 19004660 (Version 1)
Quarter: 2021Q1

REPORT INFORMATION
  Report Type: Spontaneous
  Country: US (occurrence: US)
  Receive Date: 20210313
  Receipt Date: 20210313
  Transmission Date: 20210420
  Serious: Yes (Death, Other)
  Sender: FDA-Public Use
  Company Number: US-JNJFOC-20191204388

PATIENT
  Age: 27 Year
  Sex: Male

DRUGS (2)
  1. DOXYLAMINE [Suspect]
     Active Substance: DOXYLAMINE
     Indication: PRODUCT USED FOR UNKNOWN INDICATION
     Route: 065
  2. IMODIUM [Suspect]
     Active Substance: LOPERAMIDE HYDROCHLORIDE
     Indication: PRODUCT USED FOR UNKNOWN INDICATION
     Route: 065

REACTIONS (9)
  - Electrocardiogram QT prolonged [Unknown]
  - Hypotension [Unknown]
  - Electrocardiogram QRS complex prolonged [Unknown]
  - Tachycardia [Unknown]
  - Atrioventricular block [Unknown]
  - Ventricular arrhythmia [Unknown]
  - Bradycardia [Unknown]
  - Respiratory depression [Unknown]
  - Toxicity to various agents [Fatal]
